FAERS Safety Report 5474286-9 (Version None)
Quarter: 2007Q4

REPORT INFORMATION
  Report Type: 
  Country: None (occurrence: None)
  Receive Date: 20071002
  Receipt Date: 20070814
  Transmission Date: 20080405
  Serious: No
  Sender: FDA-Public Use
  Company Number: US-ASTRAZENECA-2007UW18018

PATIENT
  Age: 59 Year
  Sex: Female
  Weight: 94.5 kg

DRUGS (2)
  1. ARIMIDEX [Suspect]
     Indication: BREAST CANCER
     Route: 048
     Dates: start: 20070509
  2. BENICAR HCT [Concomitant]
     Indication: HYPERTENSION
     Dosage: 20/12.5
     Route: 048

REACTIONS (1)
  - HIRSUTISM [None]
